FAERS Safety Report 19873107 (Version 1)
Quarter: 2021Q3

REPORT INFORMATION
  Report Type: Other
  Country: US (occurrence: US)
  Receive Date: 20210922
  Receipt Date: 20210922
  Transmission Date: 20211014
  Serious: No
  Sender: FDA-Public Use
  Company Number: US-ELITE LABORATORIES INC.-2021ELT00070

PATIENT
  Age: 47 Year
  Sex: Female
  Weight: 76.64 kg

DRUGS (3)
  1. VITAMIN E [Concomitant]
     Active Substance: .ALPHA.-TOCOPHEROL
     Dosage: 50000 IU, 1X/WEEK
  2. DEXTROAMPHET SACCHARAT, AMPHET ASPARTATE, DEXTROAMPHET SULFATE AND AMPHET SULFAT [Suspect]
     Active Substance: AMPHETAMINE ASPARTATE\AMPHETAMINE SULFATE\DEXTROAMPHETAMINE SACCHARATE\DEXTROAMPHETAMINE SULFATE
     Indication: ATTENTION DEFICIT HYPERACTIVITY DISORDER
     Dosage: 15 MG, 2X/DAY
     Route: 048
     Dates: start: 20210320, end: 20210322
  3. MELOXICAM. [Concomitant]
     Active Substance: MELOXICAM

REACTIONS (25)
  - Bruxism [Recovered/Resolved]
  - Vision blurred [Recovered/Resolved]
  - Irritability [Recovered/Resolved]
  - Affective disorder [Recovered/Resolved]
  - Respiration abnormal [Recovered/Resolved]
  - Performance status decreased [Recovered/Resolved]
  - Pelvic pain [Recovering/Resolving]
  - Neck pain [Recovering/Resolving]
  - Attention deficit hyperactivity disorder [Recovered/Resolved]
  - Aphasia [Recovered/Resolved]
  - Feeling abnormal [Recovered/Resolved]
  - Drug ineffective [Recovered/Resolved]
  - Memory impairment [Recovered/Resolved]
  - Product substitution issue [Recovered/Resolved]
  - Depression [Recovered/Resolved]
  - Abdominal pain upper [Recovered/Resolved]
  - Fatigue [Recovered/Resolved]
  - Nausea [Recovered/Resolved]
  - Product quality issue [Recovered/Resolved]
  - Headache [Recovered/Resolved]
  - Anxiety [Recovered/Resolved]
  - Pain in extremity [Recovering/Resolving]
  - Pain [Recovering/Resolving]
  - Cognitive disorder [Recovered/Resolved]
  - Arthralgia [Recovering/Resolving]

NARRATIVE: CASE EVENT DATE: 202103
